FAERS Safety Report 9752118 (Version 1)
Quarter: 2013Q4

REPORT INFORMATION
  Report Type: Report from Study
  Country: BR (occurrence: BR)
  Receive Date: 20131213
  Receipt Date: 20131213
  Transmission Date: 20140711
  Serious: Yes (Other)
  Sender: FDA-Public Use
  Company Number: PHHY2013BR145605

PATIENT
  Sex: Female

DRUGS (2)
  1. SANDOSTATIN LAR [Suspect]
     Indication: GASTRIC CANCER
     Dosage: UNK UKN, UNK
  2. OCUVITE [Concomitant]
     Indication: VISUAL IMPAIRMENT
     Dosage: UNK UKN, UNK

REACTIONS (5)
  - Myopia [Unknown]
  - Cataract [Unknown]
  - Labyrinthitis [Unknown]
  - Memory impairment [Unknown]
  - Heart rate irregular [Unknown]
